FAERS Safety Report 6689981-3 (Version None)
Quarter: 2010Q2

REPORT INFORMATION
  Report Type: 
  Country: None (occurrence: None)
  Receive Date: 20100421
  Receipt Date: 20100412
  Transmission Date: 20101027
  Serious: Yes (Other)
  Sender: FDA-Public Use
  Company Number: JP-JNJFOC-20100403653

PATIENT

DRUGS (3)
  1. DUROTEP [Suspect]
     Indication: PAIN
     Route: 062
  2. DUROTEP [Suspect]
     Route: 062
  3. PROCHLORPERAZINE [Concomitant]
     Indication: PROPHYLAXIS
     Route: 048

REACTIONS (3)
  - RESTLESSNESS [None]
  - SUICIDAL IDEATION [None]
  - TREATMENT NONCOMPLIANCE [None]
